FAERS Safety Report 8428761 (Version 3)
Quarter: 2013Q2

REPORT INFORMATION
  Report Type: Spontaneous
  Country: US (occurrence: None)
  Receive Date: 20120215
  Receipt Date: 20130501
  Transmission Date: 20140414
  Serious: Yes (Hospitalization)
  Sender: FDA-Public Use
  Company Number: JPI-P-018674

PATIENT
  Age: 29 Year
  Sex: Female
  Weight: 88.45 kg

DRUGS (7)
  1. XYREM [Suspect]
     Indication: CATAPLEXY
     Dosage: 4.5 GM (2.25 GM,2 IN 1 D),ORAL ; (3 GM FIRST DOSE/2.25 GM SECOND DOSE),ORAL
     Route: 048
     Dates: start: 20111126, end: 20111127
  2. ARMODAFINIL [Suspect]
     Indication: NARCOLEPSY
     Dosage: ORAL
     Route: 048
     Dates: start: 20111020, end: 20111129
  3. ALBUTEROL [Concomitant]
  4. ONDANSETRON HYDROCHLORIDE [Concomitant]
  5. TOPIRAMATE [Concomitant]
  6. ZOLPIDEM TARTRATE [Concomitant]
  7. AMPHETAMINE, DEXTROAMPHETAMINE MIXED SALTS PSYCHOSTIMULANTS AND NOOTROPICS [Concomitant]

REACTIONS (9)
  - DYSGEUSIA [None]
  - WEIGHT DECREASED [None]
  - DRUG HYPERSENSITIVITY [None]
  - ANAPHYLACTOID REACTION [None]
  - UPPER-AIRWAY COUGH SYNDROME [None]
  - PHARYNGEAL OEDEMA [None]
  - CHOKING SENSATION [None]
  - SENSATION OF FOREIGN BODY [None]
  - Vomiting [None]
